FAERS Safety Report 5909450-5 (Version None)
Quarter: 2008Q4

REPORT INFORMATION
  Report Type: 
  Country: None (occurrence: None)
  Receive Date: 20081006
  Receipt Date: 20080924
  Transmission Date: 20090506
  Serious: Yes (Hospitalization)
  Sender: FDA-Public Use
  Company Number: FR-WYE-H06186108

PATIENT
  Sex: Male

DRUGS (12)
  1. CEFIXIME CHEWABLE [Suspect]
     Indication: BRONCHITIS
     Dosage: 200MG - UNKNOWN DOSES/DAY
     Route: 048
     Dates: start: 20080630, end: 20080702
  2. STILNOX [Suspect]
     Indication: INSOMNIA
     Dosage: 10 MG - UNKNOWN DOSES/DAY
     Route: 048
     Dates: end: 20080702
  3. PERMIXON [Suspect]
     Indication: BENIGN PROSTATIC HYPERPLASIA
     Dosage: 160 MG - UNKNOWN DOSES/DAY
     Route: 048
     Dates: end: 20080702
  4. MODURETIC 5-50 [Suspect]
     Indication: HYPERTENSION
     Dosage: 55 MG - UNKNOWN DOSES/DAY
     Route: 048
     Dates: end: 20080702
  5. ACETAMINOPHEN [Concomitant]
     Indication: PAIN
     Dosage: UNKNOWN DOSE - IF NEEDED
     Dates: end: 20080702
  6. NOCTRAN 10 [Suspect]
     Indication: INSOMNIA
     Dosage: 18.25 MG - UNKNOWN DOSES/DAY
     Route: 048
     Dates: end: 20080702
  7. TANAKAN [Suspect]
     Dosage: 40 MG - UNKNOWN DOSES/DAY
     Route: 048
     Dates: end: 20080702
  8. VASTAREL [Suspect]
     Dosage: 35 MG - UNKNOWN DOSES/DAY
     Route: 048
     Dates: end: 20080702
  9. CLARITIN [Suspect]
     Indication: RHINITIS ALLERGIC
     Dosage: UNKNOWN
     Route: 048
     Dates: end: 20080702
  10. OROCAL [Suspect]
     Dosage: UNKNOWN
     Route: 048
     Dates: end: 20080702
  11. XATRAL [Suspect]
     Indication: BENIGN PROSTATIC HYPERPLASIA
     Dosage: 10 MG - UNKNOWN DOSES/DAY
     Route: 048
     Dates: end: 20080703
  12. OMEPRAZOLE [Suspect]
     Dosage: UNKNOWN
     Route: 048
     Dates: end: 20080703

REACTIONS (3)
  - CHOLESTASIS [None]
  - GENERAL PHYSICAL HEALTH DETERIORATION [None]
  - RENAL FAILURE [None]
